FAERS Safety Report 6384747-6 (Version None)
Quarter: 2009Q4

REPORT INFORMATION
  Report Type: 
  Country: None (occurrence: None)
  Receive Date: 20091001
  Receipt Date: 20090921
  Transmission Date: 20100525
  Serious: Yes (Other)
  Sender: FDA-Public Use
  Company Number: AE-GENENTECH-291137

PATIENT

DRUGS (1)
  1. BEVACIZUMAB [Suspect]
     Indication: GLAUCOMA
     Dosage: UNK
     Route: 031

REACTIONS (2)
  - HYPHAEMA [None]
  - TREATMENT FAILURE [None]
